FAERS Safety Report 4617169-6 (Version None)
Quarter: 2005Q1

REPORT INFORMATION
  Report Type: 
  Country: None (occurrence: None)
  Receive Date: 20050323
  Receipt Date: 20050225
  Transmission Date: 20050727
  Serious: Yes (Hospitalization)
  Sender: FDA-Public Use
  Company Number: JP-GLAXOSMITHKLINE-B0373185A

PATIENT
  Age: 52 Year
  Sex: Male
  Weight: 53 kg

DRUGS (4)
  1. PAXIL [Suspect]
     Indication: DEPRESSION
     Dosage: 20MG PER DAY
     Route: 048
     Dates: start: 20050106, end: 20050207
  2. LENDORM [Concomitant]
     Indication: INSOMNIA
     Dosage: .25MG PER DAY
     Route: 048
     Dates: start: 20050106, end: 20050207
  3. SOLANAX [Concomitant]
     Indication: IRRITABILITY
     Dosage: .8MG PER DAY
     Route: 048
     Dates: start: 20050106, end: 20050207
  4. NORVASC [Concomitant]
     Indication: HYPERTENSION
     Dosage: 50MG PER DAY
     Route: 048
     Dates: start: 20050106, end: 20050207

REACTIONS (7)
  - DECREASED APPETITE [None]
  - DEPRESSION [None]
  - HYPERHIDROSIS [None]
  - INCOHERENT [None]
  - LOGORRHOEA [None]
  - MANIA [None]
  - TREMOR [None]
